FAERS Safety Report 22749804 (Version 2)
Quarter: 2023Q4

REPORT INFORMATION
  Report Type: Spontaneous
  Country: US (occurrence: US)
  Receive Date: 20230726
  Receipt Date: 20231124
  Transmission Date: 20240109
  Serious: No
  Sender: FDA-Public Use
  Company Number: US-SA-SAC20230725000280

PATIENT
  Age: 33 Year
  Sex: Female

DRUGS (12)
  1. DUPIXENT [Suspect]
     Active Substance: DUPILUMAB
     Indication: Asthma
     Dosage: 200 MG: QOW
     Route: 058
     Dates: start: 20230309
  2. ADVAIR HFA [Concomitant]
     Active Substance: FLUTICASONE PROPIONATE\SALMETEROL XINAFOATE
  3. LEVETIRACETAM [Concomitant]
     Active Substance: LEVETIRACETAM
  4. LOSARTAN POTASSIUM [Concomitant]
     Active Substance: LOSARTAN POTASSIUM
  5. MONTELUKAST [Concomitant]
     Active Substance: MONTELUKAST SODIUM
  6. RIZATRIPTAN [Concomitant]
     Active Substance: RIZATRIPTAN
  7. SPIRIVA [Concomitant]
     Active Substance: TIOTROPIUM BROMIDE MONOHYDRATE
  8. SUMATRIPTAN [Concomitant]
     Active Substance: SUMATRIPTAN
  9. TOLTERODINE [Concomitant]
     Active Substance: TOLTERODINE
  10. VARENICLINE [Concomitant]
     Active Substance: VARENICLINE
  11. ALBUTEROL [Concomitant]
     Active Substance: ALBUTEROL
  12. CHLORHEXIDINE GLUCONATE [Concomitant]
     Active Substance: CHLORHEXIDINE GLUCONATE

REACTIONS (5)
  - Impaired quality of life [Unknown]
  - Oropharyngeal pain [Unknown]
  - Injection site reaction [Unknown]
  - Drug ineffective [Unknown]
  - Asthma [Unknown]

NARRATIVE: CASE EVENT DATE: 20230101
